FAERS Safety Report 6022335-1 (Version None)
Quarter: 2008Q4

REPORT INFORMATION
  Report Type: 
  Country: None (occurrence: None)
  Receive Date: 20081221
  Receipt Date: 20081221
  Transmission Date: 20090506
  Serious: Yes (Other)
  Sender: FDA-Public Use
  Company Number: None

PATIENT
  Age: 22 Year
  Sex: Female
  Weight: 61.2356 kg

DRUGS (2)
  1. REMICADE [Suspect]
     Indication: ANAL FISSURE
     Dosage: IV DRIP
     Route: 041
     Dates: start: 20080501, end: 20080819
  2. REMICADE [Suspect]
     Indication: CROHN'S DISEASE
     Dosage: IV DRIP
     Route: 041
     Dates: start: 20080501, end: 20080819

REACTIONS (20)
  - ACNE [None]
  - ALOPECIA [None]
  - BLISTER [None]
  - DRY SKIN [None]
  - ERYTHEMA [None]
  - INCREASED BRONCHIAL SECRETION [None]
  - METRORRHAGIA [None]
  - PAIN [None]
  - PRODUCTIVE COUGH [None]
  - PRURITUS [None]
  - PSORIASIS [None]
  - RASH [None]
  - RASH PAPULAR [None]
  - SCAB [None]
  - SKIN EXFOLIATION [None]
  - SKIN LESION [None]
  - THROAT TIGHTNESS [None]
  - TONGUE DISCOLOURATION [None]
  - TONGUE DISORDER [None]
  - URTICARIA [None]
